FAERS Safety Report 13755104 (Version 1)
Quarter: 2017Q3

REPORT INFORMATION
  Report Type: Spontaneous
  Country: BE (occurrence: BE)
  Receive Date: 20170714
  Receipt Date: 20170714
  Transmission Date: 20171127
  Serious: Yes (Hospitalization, Other)
  Sender: FDA-Public Use
  Company Number: BE-APOTEX-2017AP014690

PATIENT
  Age: 30 Year
  Sex: Female

DRUGS (3)
  1. LEVOFLOXACIN APOTEX, FILMOMHULDE TABLETTEN [Suspect]
     Active Substance: LEVOFLOXACIN
     Indication: EVIDENCE BASED TREATMENT
     Dosage: UNK
     Route: 065
  2. LEVOFLOXACIN APOTEX, FILMOMHULDE TABLETTEN [Suspect]
     Active Substance: LEVOFLOXACIN
     Indication: PROPHYLAXIS
     Dosage: 500 MG, QD
     Route: 065
  3. CEFTRIAXONE. [Concomitant]
     Active Substance: CEFTRIAXONE
     Indication: PROPHYLAXIS
     Dosage: 1 G, BID
     Route: 042

REACTIONS (4)
  - Postoperative wound infection [Unknown]
  - Drug ineffective [Unknown]
  - Drug resistance [Unknown]
  - Aeromonas infection [Unknown]
